FAERS Safety Report 19920206 (Version 15)
Quarter: 2024Q3

REPORT INFORMATION
  Report Type: Spontaneous
  Country: US (occurrence: US)
  Receive Date: 20211005
  Receipt Date: 20240902
  Transmission Date: 20241017
  Serious: Yes (Other)
  Sender: PFIZER
  Company Number: US-PFIZER INC-202101259504

PATIENT
  Age: 54 Year
  Sex: Female

DRUGS (1)
  1. PREMARIN [Suspect]
     Active Substance: ESTROGENS, CONJUGATED
     Indication: Menopausal symptoms
     Dosage: 0.45 MG, 1X/DAY
     Route: 048

REACTIONS (3)
  - Infection [Unknown]
  - Urinary tract infection [Unknown]
  - Brain fog [Unknown]

NARRATIVE: CASE EVENT DATE: 20240701
